FAERS Safety Report 10332358 (Version 1)
Quarter: 2014Q3

REPORT INFORMATION
  Report Type: Spontaneous
  Country: US (occurrence: US)
  Receive Date: 20140722
  Receipt Date: 20140722
  Transmission Date: 20150326
  Serious: No
  Sender: FDA-Public Use
  Company Number: US-ASTRAZENECA-2014SE23101

PATIENT
  Age: 36 Year
  Sex: Female
  Weight: 83.9 kg

DRUGS (3)
  1. FLUVOXAMINE [Concomitant]
     Active Substance: FLUVOXAMINE
     Indication: ANXIETY
     Route: 048
     Dates: start: 201401
  2. QUETIAPINE FUMERATE [Suspect]
     Active Substance: QUETIAPINE FUMARATE
     Indication: ANXIETY
     Route: 048
  3. QUETIAPINE FUMERATE [Suspect]
     Active Substance: QUETIAPINE FUMARATE
     Indication: ANXIETY
     Route: 048
     Dates: start: 20140327

REACTIONS (6)
  - Hypoaesthesia [Unknown]
  - Paraesthesia oral [Unknown]
  - Hypoaesthesia oral [Unknown]
  - Restlessness [Unknown]
  - Thinking abnormal [Unknown]
  - Palpitations [Unknown]

NARRATIVE: CASE EVENT DATE: 20140401
